FAERS Safety Report 9297716 (Version 1)
Quarter: 2013Q2

REPORT INFORMATION
  Report Type: Spontaneous
  Country: US (occurrence: None)
  Receive Date: 20130517
  Receipt Date: 20130517
  Transmission Date: 20140414
  Serious: Yes (Hospitalization)
  Sender: FDA-Public Use
  Company Number: None

PATIENT
  Age: 13 Year
  Sex: Male

DRUGS (1)
  1. AMOXICILLIN/CLAVULANATE [Suspect]
     Indication: INFECTED BITES
     Dates: start: 20120129, end: 20120205

REACTIONS (21)
  - Drug-induced liver injury [None]
  - Jaundice [None]
  - Blood bilirubin increased [None]
  - Bilirubin conjugated increased [None]
  - Alanine aminotransferase increased [None]
  - Aspartate aminotransferase increased [None]
  - Ocular icterus [None]
  - Abdominal pain [None]
  - Viral infection [None]
  - Vomiting [None]
  - Diarrhoea [None]
  - Fatigue [None]
  - Somnolence [None]
  - Cholestasis [None]
  - Lymphocytic infiltration [None]
  - Ascites [None]
  - Periportal oedema [None]
  - White blood cell count decreased [None]
  - Haemoglobin decreased [None]
  - Haematocrit decreased [None]
  - Lipase increased [None]
